FAERS Safety Report 7993505-8 (Version None)
Quarter: 2011Q4

REPORT INFORMATION
  Report Type: 
  Country: None (occurrence: None)
  Receive Date: 20111219
  Receipt Date: 20111212
  Transmission Date: 20120403
  Serious: Yes (Hospitalization)
  Sender: FDA-Public Use
  Company Number: US-AMGEN-USACT2011057244

PATIENT
  Age: 64 Year
  Sex: Male
  Weight: 129.25 kg

DRUGS (38)
  1. BLINDED DARBEPOETIN ALFA [Suspect]
     Dates: start: 20111018
  2. PRAZOSIN HCL [Concomitant]
     Indication: HYPERVIGILANCE
  3. TOPIRAMATE [Concomitant]
     Indication: MOOD ALTERED
  4. BLINDED DARBEPOETIN ALFA [Suspect]
     Indication: CARDIAC FAILURE
     Dates: start: 20111018
  5. BLINDED PLACEBO [Suspect]
     Indication: CARDIAC FAILURE
     Dates: start: 20111018
  6. CETIRIZINE [Concomitant]
     Indication: HYPERSENSITIVITY
     Dosage: 10 MG, QD
     Route: 048
  7. ACETAMINOPHEN AND HYDROCODONE BITARTRATE [Concomitant]
     Indication: PAIN
     Dosage: 500 MG, PRN
     Route: 048
  8. METOLAZONE [Concomitant]
     Indication: HYPERTENSION
     Dosage: 2.5 MG, QWK
     Route: 048
  9. PRAZOSIN HCL [Concomitant]
     Indication: NIGHTMARE
     Dosage: 5 MG, QD
     Route: 048
  10. ROSUVASTATIN CALCIUM [Concomitant]
     Indication: BLOOD CHOLESTEROL ABNORMAL
     Dosage: 20 MG, QD
     Route: 048
  11. VENLAFAXINE HCL [Concomitant]
     Indication: POST-TRAUMATIC STRESS DISORDER
     Dosage: 100 MG, BID
     Route: 048
  12. MOXIFLOXACIN [Concomitant]
     Indication: INFECTION
     Dosage: 400 MG, UNK
     Route: 048
  13. ASPIRIN [Concomitant]
     Indication: PROPHYLAXIS
     Dosage: 81 MG, QD
  14. FUROSEMIDE [Concomitant]
     Indication: BLOOD PRESSURE
     Dosage: 40 MG, BID
     Route: 048
  15. INSULIN [Concomitant]
     Indication: BLOOD GLUCOSE INCREASED
     Route: 058
  16. TOPIRAMATE [Concomitant]
     Indication: HEADACHE
     Dosage: 100 MG, BID
     Route: 048
  17. TOPIRAMATE [Concomitant]
     Indication: POST-TRAUMATIC STRESS DISORDER
  18. HALOPERIDOL [Concomitant]
     Indication: PSYCHOTIC DISORDER
     Dosage: 2 MG, PRN
  19. MIRTAZAPINE [Concomitant]
     Indication: SLEEP DISORDER
  20. QUETIAPINE FUMARAT [Concomitant]
     Indication: HALLUCINATION
  21. VENLAFAXINE HCL [Concomitant]
     Indication: DEPRESSION
  22. WARFARIN SODIUM [Concomitant]
     Dosage: 5 MG, UNK
     Route: 048
  23. SOTALOL HCL [Concomitant]
     Dosage: UNK
  24. AQUAPHOR [Concomitant]
     Dosage: UNK UNK, QD
     Route: 061
  25. LORAZEPAM [Concomitant]
     Indication: PANIC ATTACK
     Dosage: 2 MG, QD
     Route: 048
  26. QUETIAPINE FUMARAT [Concomitant]
     Indication: MOOD ALTERED
     Dosage: 400 MG, PRN
     Route: 048
  27. RANITIDINE HYDROCHLORIDE [Concomitant]
     Indication: GASTROOESOPHAGEAL REFLUX DISEASE
     Dosage: 150 MG, BID
     Route: 048
  28. HALOPERIDOL [Concomitant]
     Indication: HALLUCINATION
  29. LISINOPRIL [Concomitant]
     Indication: BLOOD PRESSURE ABNORMAL
     Dosage: 40 MG, QD
     Route: 048
  30. LORAZEPAM [Concomitant]
     Indication: ANXIETY
  31. MIRTAZAPINE [Concomitant]
     Indication: MOOD ALTERED
     Dosage: 30 MG, QD
     Route: 048
  32. POTASSIUM CHLORIDE [Concomitant]
     Dosage: 20 MEQ, TID
     Route: 048
  33. VENLAFAXINE HCL [Concomitant]
     Indication: PAIN
  34. CAMPHOR W/MENTHOL [Concomitant]
     Indication: PAIN
     Dosage: UNK UNK, BID
     Route: 061
  35. TOPIRAMATE [Concomitant]
     Indication: ANGER
  36. CARVEDILOL [Concomitant]
     Indication: CARDIAC FAILURE
     Dosage: 12.5 MG, BID
     Route: 048
  37. CLONAZEPAM [Concomitant]
     Indication: ANXIETY
     Dosage: 1 MG, PRN
     Route: 048
  38. IPRATROPIUM BROMIDE [Concomitant]
     Indication: CHRONIC OBSTRUCTIVE PULMONARY DISEASE
     Dosage: UNK UNK, BID
     Route: 055

REACTIONS (1)
  - CARDIAC FAILURE [None]
